FAERS Safety Report 7355422-6 (Version None)
Quarter: 2011Q1

REPORT INFORMATION
  Report Type: 
  Country: None (occurrence: None)
  Receive Date: 20110316
  Receipt Date: 20110308
  Transmission Date: 20110831
  Serious: Yes (Death, Hospitalization)
  Sender: FDA-Public Use
  Company Number: JP-ELI_LILLY_AND_COMPANY-JP201101002263

PATIENT
  Age: 63 Year
  Sex: Male
  Weight: 69 kg

DRUGS (7)
  1. ALIMTA [Suspect]
     Indication: NON-SMALL CELL LUNG CANCER
     Dosage: 880 MG, UNK
     Route: 042
     Dates: start: 20101214, end: 20101214
  2. PARAPLATIN [Concomitant]
     Indication: NON-SMALL CELL LUNG CANCER
     Dosage: 690 MG, UNK
     Route: 042
     Dates: start: 20101214, end: 20101214
  3. OXYCONTIN [Concomitant]
     Dosage: UNK, UNK
     Route: 048
  4. NOVORAPID [Concomitant]
     Indication: DIABETES MELLITUS
     Dosage: 12 U, 3/D
     Route: 065
     Dates: end: 20101230
  5. ACTOS [Concomitant]
     Indication: DIABETES MELLITUS
     Route: 048
     Dates: end: 20101230
  6. OXYCONTIN [Concomitant]
     Dosage: 10 MG, DAILY (1/D)
     Route: 048
     Dates: start: 20101221
  7. ZOMETA [Concomitant]
     Indication: METASTASES TO BONE
     Dosage: 4 MG, UNK
     Route: 042
     Dates: start: 20101221, end: 20101221

REACTIONS (1)
  - HEPATIC FAILURE [None]
